FAERS Safety Report 4848650-2 (Version None)
Quarter: 2005Q4

REPORT INFORMATION
  Report Type: 
  Country: None (occurrence: None)
  Receive Date: 20051206
  Receipt Date: 20051123
  Transmission Date: 20060501
  Serious: Yes (Other)
  Sender: FDA-Public Use
  Company Number: 2005160952

PATIENT
  Age: 17 Year
  Sex: Female

DRUGS (2)
  1. GABAPENTIN [Suspect]
     Indication: NEURALGIA
     Dosage: 300  MG (100 MG, 3 IN 1 D), ORAL
     Route: 048
     Dates: start: 20051101, end: 20051109
  2. GELSEMIUM (GELSEMIUM) [Concomitant]

REACTIONS (1)
  - AGGRESSION [None]
